FAERS Safety Report 8138440-X (Version None)
Quarter: 2012Q1

REPORT INFORMATION
  Report Type: 
  Country: None (occurrence: None)
  Receive Date: 20120215
  Receipt Date: 20120208
  Transmission Date: 20120608
  Serious: Yes (Hospitalization)
  Sender: FDA-Public Use
  Company Number: JP-JNJFOC-20120205472

PATIENT
  Age: 6 Decade
  Sex: Male

DRUGS (3)
  1. ITRACONAZOLE [Suspect]
     Indication: INFECTION PROPHYLAXIS
     Route: 048
  2. TACROLIMUS [Interacting]
     Indication: PROPHYLAXIS
     Route: 065
  3. TACROLIMUS [Interacting]
     Route: 065

REACTIONS (3)
  - TREATMENT NONCOMPLIANCE [None]
  - IMMUNOSUPPRESSANT DRUG LEVEL DECREASED [None]
  - DRUG INTERACTION [None]
